FAERS Safety Report 25529977 (Version 2)
Quarter: 2025Q3

REPORT INFORMATION
  Report Type: Spontaneous
  Country: CN (occurrence: CN)
  Receive Date: 20250708
  Receipt Date: 20250815
  Transmission Date: 20251020
  Serious: Yes (Other)
  Sender: PFIZER
  Company Number: CN-PFIZER INC-PV202500080322

PATIENT
  Age: 22 Year
  Sex: Male

DRUGS (50)
  1. XYNTHA [Suspect]
     Active Substance: MOROCTOCOG ALFA
     Dates: start: 20230410
  2. XYNTHA [Suspect]
     Active Substance: MOROCTOCOG ALFA
     Dosage: 1500 IU, 1X/DAY
     Route: 042
     Dates: start: 20230516
  3. XYNTHA [Suspect]
     Active Substance: MOROCTOCOG ALFA
     Dosage: 1500 IU, 1X/DAY
     Route: 042
     Dates: start: 20230523
  4. XYNTHA [Suspect]
     Active Substance: MOROCTOCOG ALFA
     Dosage: 1500 IU, 1X/DAY
     Route: 042
     Dates: start: 20230609
  5. XYNTHA [Suspect]
     Active Substance: MOROCTOCOG ALFA
     Dosage: 1500 IU, 1X/DAY
     Route: 042
     Dates: start: 20230703
  6. XYNTHA [Suspect]
     Active Substance: MOROCTOCOG ALFA
     Dosage: 1500 IU, 1X/DAY
     Route: 042
     Dates: start: 20230707
  7. XYNTHA [Suspect]
     Active Substance: MOROCTOCOG ALFA
     Dosage: 1500 IU, 1X/DAY
     Route: 042
     Dates: start: 20230710
  8. XYNTHA [Suspect]
     Active Substance: MOROCTOCOG ALFA
     Dosage: 1500 IU, 1X/DAY
     Route: 042
     Dates: start: 20230717
  9. XYNTHA [Suspect]
     Active Substance: MOROCTOCOG ALFA
     Dosage: 1500 IU, 1X/DAY
     Route: 042
     Dates: start: 20230720
  10. XYNTHA [Suspect]
     Active Substance: MOROCTOCOG ALFA
     Dosage: 1500 IU, 1X/DAY
     Route: 042
     Dates: start: 20230729
  11. XYNTHA [Suspect]
     Active Substance: MOROCTOCOG ALFA
     Dosage: 1500 IU, 1X/DAY
     Route: 042
     Dates: start: 20230821
  12. XYNTHA [Suspect]
     Active Substance: MOROCTOCOG ALFA
     Dosage: 1500 IU, 1X/DAY
     Route: 042
     Dates: start: 20230911
  13. XYNTHA [Suspect]
     Active Substance: MOROCTOCOG ALFA
     Dosage: 1500 IU, 1X/DAY
     Route: 042
     Dates: start: 20231007
  14. XYNTHA [Suspect]
     Active Substance: MOROCTOCOG ALFA
     Dosage: 1500 IU, 1X/DAY
     Route: 040
     Dates: start: 20231030
  15. XYNTHA [Suspect]
     Active Substance: MOROCTOCOG ALFA
     Dosage: 1500 IU, 1X/DAY
     Route: 040
     Dates: start: 20231122
  16. XYNTHA [Suspect]
     Active Substance: MOROCTOCOG ALFA
     Dosage: 1500 IU, 1X/DAY
     Route: 040
     Dates: start: 20231212
  17. XYNTHA [Suspect]
     Active Substance: MOROCTOCOG ALFA
     Dosage: 1500 IU, 1X/DAY
     Route: 040
     Dates: start: 20240110
  18. XYNTHA [Suspect]
     Active Substance: MOROCTOCOG ALFA
     Dosage: 1500 IU, 1X/DAY
     Route: 040
     Dates: start: 20240201
  19. XYNTHA [Suspect]
     Active Substance: MOROCTOCOG ALFA
     Dosage: 1500 IU, 1X/DAY
     Route: 040
     Dates: start: 20240311
  20. XYNTHA [Suspect]
     Active Substance: MOROCTOCOG ALFA
     Dosage: 1500 IU, 1X/DAY
     Route: 040
     Dates: start: 20240322
  21. XYNTHA [Suspect]
     Active Substance: MOROCTOCOG ALFA
     Dosage: 1500 IU, 1X/DAY
     Route: 040
     Dates: start: 20240410
  22. XYNTHA [Suspect]
     Active Substance: MOROCTOCOG ALFA
     Dosage: 1500 IU, 1X/DAY
     Route: 040
     Dates: start: 20240430
  23. XYNTHA [Suspect]
     Active Substance: MOROCTOCOG ALFA
     Dosage: 1500 IU, 1X/DAY
     Route: 040
     Dates: start: 20240520
  24. XYNTHA [Suspect]
     Active Substance: MOROCTOCOG ALFA
     Dosage: 1500 IU, 1X/DAY
     Route: 040
     Dates: start: 20240711
  25. XYNTHA [Suspect]
     Active Substance: MOROCTOCOG ALFA
     Dosage: 1500 IU, 1X/DAY
     Route: 042
     Dates: start: 20240815
  26. XYNTHA [Suspect]
     Active Substance: MOROCTOCOG ALFA
     Dosage: 1500 IU, 1X/DAY
     Route: 042
     Dates: start: 20240929
  27. XYNTHA [Suspect]
     Active Substance: MOROCTOCOG ALFA
     Dosage: 1500 IU, 1X/DAY
     Route: 042
     Dates: start: 20241024
  28. XYNTHA [Suspect]
     Active Substance: MOROCTOCOG ALFA
     Dosage: 1500 IU, 1X/DAY
     Route: 042
     Dates: start: 20241122
  29. XYNTHA [Suspect]
     Active Substance: MOROCTOCOG ALFA
     Dosage: 2000 IU, 1X/DAY
     Route: 042
     Dates: start: 20241218
  30. XYNTHA [Suspect]
     Active Substance: MOROCTOCOG ALFA
     Dosage: 2000 IU, 2X/DAY
     Route: 040
     Dates: start: 20250121
  31. XYNTHA [Suspect]
     Active Substance: MOROCTOCOG ALFA
     Dosage: 2000 IU, 1X/DAY
     Route: 042
     Dates: start: 20250216
  32. XYNTHA [Suspect]
     Active Substance: MOROCTOCOG ALFA
     Dosage: 500 IU, 1X/DAY
     Route: 042
     Dates: start: 20250413
  33. XYNTHA [Suspect]
     Active Substance: MOROCTOCOG ALFA
     Dosage: 2000 IU, 1X/DAY
     Route: 040
     Dates: start: 20250424
  34. XYNTHA [Suspect]
     Active Substance: MOROCTOCOG ALFA
     Route: 040
     Dates: start: 20250510
  35. XYNTHA [Suspect]
     Active Substance: MOROCTOCOG ALFA
     Route: 040
     Dates: start: 20250512
  36. XYNTHA [Suspect]
     Active Substance: MOROCTOCOG ALFA
     Dosage: 1000 IU, 1X/DAY
     Route: 040
     Dates: start: 20250513
  37. XYNTHA [Suspect]
     Active Substance: MOROCTOCOG ALFA
     Route: 040
     Dates: start: 20250513
  38. XYNTHA [Suspect]
     Active Substance: MOROCTOCOG ALFA
     Route: 040
     Dates: start: 20250513
  39. XYNTHA [Suspect]
     Active Substance: MOROCTOCOG ALFA
     Route: 040
     Dates: start: 20250514
  40. XYNTHA [Suspect]
     Active Substance: MOROCTOCOG ALFA
     Route: 040
     Dates: start: 20250514
  41. XYNTHA [Suspect]
     Active Substance: MOROCTOCOG ALFA
     Dosage: 2500 IU, 1X/DAY
     Route: 040
     Dates: start: 20250515
  42. XYNTHA [Suspect]
     Active Substance: MOROCTOCOG ALFA
     Route: 040
     Dates: start: 20250516
  43. XYNTHA [Suspect]
     Active Substance: MOROCTOCOG ALFA
     Route: 040
     Dates: start: 20250516
  44. XYNTHA [Suspect]
     Active Substance: MOROCTOCOG ALFA
     Dosage: 3000 IU, 2X/DAY
     Route: 042
     Dates: start: 20250517
  45. XYNTHA [Suspect]
     Active Substance: MOROCTOCOG ALFA
     Dosage: 2000 IU, 1X/DAY
     Route: 042
     Dates: start: 20250518
  46. XYNTHA [Suspect]
     Active Substance: MOROCTOCOG ALFA
     Dosage: 2000 IU, 2X/DAY
     Route: 042
     Dates: start: 20250519
  47. XYNTHA [Suspect]
     Active Substance: MOROCTOCOG ALFA
     Dosage: 2000 IU, 1X/DAY
     Route: 042
     Dates: start: 20250520
  48. XYNTHA [Suspect]
     Active Substance: MOROCTOCOG ALFA
     Dosage: 1000 IU, 1X/DAY
     Route: 042
     Dates: start: 20250520
  49. XYNTHA [Suspect]
     Active Substance: MOROCTOCOG ALFA
     Dosage: 2000 IU, 1X/DAY
     Route: 042
     Dates: start: 20250521
  50. XYNTHA [Suspect]
     Active Substance: MOROCTOCOG ALFA
     Dosage: 2000 IU, 1X/DAY
     Route: 042
     Dates: start: 20250522

REACTIONS (5)
  - Knee operation [Unknown]
  - Arthralgia [Recovering/Resolving]
  - Arthralgia [Unknown]
  - Joint swelling [Recovered/Resolved]
  - Ecchymosis [Recovered/Resolved]
